FAERS Safety Report 8985432 (Version 4)
Quarter: 2013Q2

REPORT INFORMATION
  Report Type: Report from Study
  Country: JP (occurrence: JP)
  Receive Date: 20121226
  Receipt Date: 20130618
  Transmission Date: 20140414
  Serious: Yes (Hospitalization)
  Sender: FDA-Public Use
  Company Number: JP-JNJFOC-20121210770

PATIENT
  Age: 70 Year
  Sex: Male
  Weight: 82 kg

DRUGS (7)
  1. STELARA [Suspect]
     Indication: PSORIASIS
     Route: 058
     Dates: start: 20120826
  2. STELARA [Suspect]
     Indication: PSORIASIS
     Route: 058
     Dates: start: 20111012
  3. MUCODYNE [Concomitant]
     Route: 048
     Dates: start: 20111027
  4. ZYRTEC [Concomitant]
     Indication: PSORIASIS
     Route: 048
  5. DIACORT [Concomitant]
     Indication: PSORIASIS
     Route: 061
  6. SPIRIVA [Concomitant]
     Route: 055
     Dates: start: 20120308
  7. OXAROL [Concomitant]
     Indication: PSORIASIS
     Route: 061
     Dates: start: 20120921

REACTIONS (3)
  - Cellulitis [Recovered/Resolved]
  - Arthralgia [Recovering/Resolving]
  - Drug effect incomplete [Unknown]
